FAERS Safety Report 8613668-0 (Version None)
Quarter: 2012Q3

REPORT INFORMATION
  Report Type: 
  Country: None (occurrence: None)
  Receive Date: 20120823
  Receipt Date: 20120725
  Transmission Date: 20120928
  Serious: Yes (Other)
  Sender: FDA-Public Use
  Company Number: US-009507513-2012SP019168

PATIENT

DRUGS (7)
  1. MORPHINE [Concomitant]
     Dosage: UNK UNK, UNKNOWN
  2. SYNTHROID [Concomitant]
     Indication: HYPOTHYROIDISM
     Dosage: UNK UNK, UNKNOWN
  3. PEG-INTRON [Suspect]
     Indication: HEPATITIS C
     Dosage: UNK UNK, UNKNOWN
     Dates: start: 20120207
  4. OXYCODONE HCL [Concomitant]
     Dosage: UNK UNK, UNKNOWN
  5. NEXIUM [Concomitant]
     Dosage: UNK UNK, UNKNOWN
  6. REBETOL [Suspect]
     Indication: HEPATITIS C
     Dosage: UNK UNK, UNKNOWN
     Dates: start: 20120207
  7. TELAPREVIR [Suspect]
     Indication: HEPATITIS C
     Dosage: UNK UNK, UNKNOWN
     Dates: start: 20120207

REACTIONS (15)
  - DIPLOPIA [None]
  - DIZZINESS [None]
  - PAIN [None]
  - WEIGHT DECREASED [None]
  - PRURITUS [None]
  - LUNG DISORDER [None]
  - NAUSEA [None]
  - DYSPNOEA [None]
  - ASTHENIA [None]
  - IRRITABILITY [None]
  - PNEUMONIA [None]
  - HAEMOGLOBIN ABNORMAL [None]
  - INFLUENZA [None]
  - DECREASED APPETITE [None]
  - FATIGUE [None]
